FAERS Safety Report 14019623 (Version 2)
Quarter: 2017Q4

REPORT INFORMATION
  Report Type: Spontaneous
  Country: ES (occurrence: ES)
  Receive Date: 20170928
  Receipt Date: 20171013
  Transmission Date: 20180321
  Serious: Yes (Other)
  Sender: FDA-Public Use
  Company Number: ES-CASPER PHARMA LLC-2017SEB00426

PATIENT
  Age: 47 Year
  Sex: Male

DRUGS (3)
  1. AMOXICILLIN. [Concomitant]
     Active Substance: AMOXICILLIN
     Indication: HELICOBACTER INFECTION
     Dosage: 1 G/12 HRS
     Route: 065
  2. OMEPRAZOLE. [Concomitant]
     Active Substance: OMEPRAZOLE
     Indication: HELICOBACTER INFECTION
     Dosage: 20 MG/12 HRS
     Route: 065
  3. METRONIDAZOLE. [Suspect]
     Active Substance: METRONIDAZOLE
     Indication: HELICOBACTER INFECTION
     Dosage: 500 MG EVERY 8 HOURS
     Route: 048
     Dates: start: 20141006, end: 20141015

REACTIONS (5)
  - Osteoarthritis [Recovering/Resolving]
  - Neurotoxicity [Recovering/Resolving]
  - Muscle contractions involuntary [Recovering/Resolving]
  - Neck pain [Recovering/Resolving]
  - Nuchal rigidity [Recovering/Resolving]

NARRATIVE: CASE EVENT DATE: 201410
